FAERS Safety Report 17386823 (Version 1)
Quarter: 2020Q1

REPORT INFORMATION
  Report Type: Spontaneous
  Country: US (occurrence: US)
  Receive Date: 20200206
  Receipt Date: 20200206
  Transmission Date: 20200409
  Serious: Yes (Hospitalization, Other)
  Sender: FDA-Public Use
  Company Number: US-BAUSCH-BL-2020-003314

PATIENT
  Age: 73 Year
  Sex: Male

DRUGS (4)
  1. LACTULOSE. [Concomitant]
     Active Substance: LACTULOSE
     Indication: DUMPING SYNDROME
     Route: 065
  2. XIFAXAN [Suspect]
     Active Substance: RIFAXIMIN
     Dosage: BACK ON 2 TABLETS 550 MG A DAY
     Route: 048
  3. XIFAXAN [Suspect]
     Active Substance: RIFAXIMIN
     Indication: DUMPING SYNDROME
     Dosage: REDUCED TO ONE A DAY
     Route: 048
     Dates: start: 201911
  4. XIFAXAN [Suspect]
     Active Substance: RIFAXIMIN
     Indication: HEPATIC ENCEPHALOPATHY
     Dosage: 2 YEARS AGO
     Route: 048
     Dates: start: 2018, end: 201911

REACTIONS (8)
  - Pain [Unknown]
  - Inability to afford medication [Unknown]
  - Respiratory disorder [Unknown]
  - Pulmonary oedema [Unknown]
  - Insurance issue [Unknown]
  - Confusional state [Unknown]
  - Fall [Unknown]
  - Intentional product use issue [Unknown]

NARRATIVE: CASE EVENT DATE: 2019
